FAERS Safety Report 16811762 (Version 1)
Quarter: 2019Q3

REPORT INFORMATION
  Report Type: Spontaneous
  Country: DE (occurrence: DE)
  Receive Date: 20190916
  Receipt Date: 20190916
  Transmission Date: 20191005
  Serious: Yes (Hospitalization, Other)
  Sender: FDA-Public Use
  Company Number: DE-MYLANLABS-2019M1085999

PATIENT
  Age: 78 Year
  Sex: Male

DRUGS (28)
  1. PREDNISOLONE. [Concomitant]
     Active Substance: PREDNISOLONE
     Indication: PROPHYLAXIS
     Dosage: 100 MILLIGRAM
     Route: 048
     Dates: start: 20170320
  2. ACICLOVIR [Concomitant]
     Active Substance: ACYCLOVIR
     Indication: PROPHYLAXIS
     Dosage: 1600 MILLIGRAM, QD (400 MILLIGRAM, QID)
     Route: 048
     Dates: start: 20170418
  3. PEGFILGRASTIM [Suspect]
     Active Substance: PEGFILGRASTIM
     Indication: PRODUCT USED FOR UNKNOWN INDICATION
     Dosage: 6 MILLIGRAM, BIWEEKLY (6 MILLIGRAM, Q2WK)
     Route: 058
     Dates: start: 20170324
  4. RITUXIMAB. [Suspect]
     Active Substance: RITUXIMAB
     Indication: B-CELL LYMPHOMA
     Dosage: 701.25 MILLIGRAM, BIWEEKLY (701.25 MILLIGRAM, Q2WK)
     Route: 042
     Dates: start: 20170320, end: 20170615
  5. ALLOPURINOL. [Concomitant]
     Active Substance: ALLOPURINOL
     Indication: BLOOD URIC ACID ABNORMAL
     Dosage: UNK
  6. PARACETAMOL [Concomitant]
     Active Substance: ACETAMINOPHEN
     Indication: PROPHYLAXIS
     Dosage: 100 MILLIGRAM (100 MILLIGRAM ONE HOUR PRIOR RITUXIMAB)
     Route: 048
     Dates: start: 20170320
  7. CIPROFLOXACIN. [Concomitant]
     Active Substance: CIPROFLOXACIN
     Indication: PROPHYLAXIS
     Dosage: 1000 MILLIGRAM, QD (500 MILLIGRAM, BID)
     Route: 048
     Dates: start: 20170508
  8. RAMIPRIL. [Concomitant]
     Active Substance: RAMIPRIL
     Indication: HYPERTENSION
     Dosage: 5 MILLIGRAM, QD
     Route: 048
  9. COLECALCIFEROL [Concomitant]
     Active Substance: CHOLECALCIFEROL
     Indication: VITAMIN SUPPLEMENTATION
     Dosage: 20000 INTERNATIONAL UNIT, BIWEEKLY (20000 INTERNATIONAL UNIT, Q2WK)
     Route: 048
     Dates: start: 20170418
  10. LANSOPRAZOLE. [Concomitant]
     Active Substance: LANSOPRAZOLE
     Indication: PROPHYLAXIS AGAINST GASTROINTESTINAL ULCER
     Dosage: 30 MILLIGRAM, QD
     Route: 048
  11. VINCRISTINE [Suspect]
     Active Substance: VINCRISTINE
     Indication: B-CELL LYMPHOMA
     Dosage: UNK
     Route: 042
     Dates: start: 20170328
  12. SULFAMETHOXAZOLE AND TRIMETHOPRIM [Concomitant]
     Active Substance: SULFAMETHOXAZOLE\TRIMETHOPRIM
     Indication: PROPHYLAXIS
     Dosage: 960 MILLIGRAM (960 MILLIGRAM, MON, TUE, FRI)
     Route: 048
     Dates: start: 20170418
  13. MESNA. [Concomitant]
     Active Substance: MESNA
     Dosage: 400 MILLIGRAM, QD
     Route: 048
     Dates: start: 20170321
  14. FELODIPINE. [Concomitant]
     Active Substance: FELODIPINE
     Indication: HYPERTENSION
     Dosage: UNK
     Route: 048
  15. CYCLOPHOSPHAMIDE. [Suspect]
     Active Substance: CYCLOPHOSPHAMIDE
     Indication: B-CELL LYMPHOMA
     Dosage: UNK UNK, BIWEEKLY (1,UNK, Q2WK )
     Route: 042
     Dates: start: 20170321
  16. ALIZAPRIDE [Concomitant]
     Active Substance: ALIZAPRIDE
     Indication: PROPHYLAXIS
     Dosage: 50 MILLIGRAM (50 MILLIGRAM DAY)
     Route: 048
     Dates: start: 20170322
  17. FONDAPARINUX SODIUM. [Concomitant]
     Active Substance: FONDAPARINUX SODIUM
     Indication: THROMBOSIS PROPHYLAXIS
     Dosage: UNK
  18. ARGATROBAN. [Concomitant]
     Active Substance: ARGATROBAN
     Indication: COAGULOPATHY
     Dosage: UNK (6 ML/H)
     Route: 048
     Dates: start: 20170325, end: 20170328
  19. ENOXAPARIN SODIUM. [Concomitant]
     Active Substance: ENOXAPARIN SODIUM
     Indication: THROMBOSIS PROPHYLAXIS
     Dosage: 40 MILLIGRAM, QD
     Route: 058
  20. FONDAPARINUX SODIUM. [Concomitant]
     Active Substance: FONDAPARINUX SODIUM
     Indication: THROMBOCYTOPENIA
     Dosage: 2.5 MILLIGRAM, QD
     Route: 058
     Dates: start: 20170328
  21. TRIAMTERENE AND HYDROCHLOROTHIAZIDE [Concomitant]
     Active Substance: HYDROCHLOROTHIAZIDE\TRIAMTERENE
     Indication: HYPERTENSION
     Dosage: UNK
  22. MESNA. [Concomitant]
     Active Substance: MESNA
     Indication: PROPHYLAXIS
     Dosage: 200 MILLIGRAM (200 MILLIGRAM DAY 2)
     Route: 048
  23. ONDANSETRON [Concomitant]
     Active Substance: ONDANSETRON
     Indication: PROPHYLAXIS
     Dosage: 8 MILLIGRAM, QD
     Route: 042
     Dates: start: 20170320
  24. DOXORUBICINE                       /00330901/ [Suspect]
     Active Substance: DOXORUBICIN
     Indication: B-CELL LYMPHOMA
     Dosage: UNK UNK, BIWEEKLY (1, UNK, Q2WK )
     Route: 042
     Dates: start: 20170321
  25. PREDNISONE. [Suspect]
     Active Substance: PREDNISONE
     Indication: B-CELL LYMPHOMA
     Dosage: UNK UNK, BIWEEKLY (1,UNK, Q2WK)
     Route: 048
     Dates: start: 20170321
  26. ALLOPURINOL. [Concomitant]
     Active Substance: ALLOPURINOL
     Indication: PROPHYLAXIS
     Dosage: 100 MILLIGRAM, QD
     Route: 048
     Dates: start: 20170320
  27. METOPROLOLTARTRAT [Concomitant]
     Indication: HYPERTENSION
     Dosage: 47.5 MILLIGRAM
     Route: 048
  28. CLEMASTIN [Concomitant]
     Active Substance: CLEMASTINE
     Indication: PROPHYLAXIS
     Dosage: 2 MILLIGRAM
     Route: 042

REACTIONS (2)
  - Febrile neutropenia [Unknown]
  - Anaemia [Recovered/Resolved]

NARRATIVE: CASE EVENT DATE: 2017
